FAERS Safety Report 9931785 (Version 1)
Quarter: 2014Q1

REPORT INFORMATION
  Report Type: Spontaneous
  Country: US (occurrence: None)
  Receive Date: 20140227
  Receipt Date: 20140227
  Transmission Date: 20141002
  Serious: Yes (Disabling, Other)
  Sender: FDA-Public Use
  Company Number: None

PATIENT
  Age: 46 Year
  Sex: Male
  Weight: 81.65 kg

DRUGS (2)
  1. NORTRIPTYLINE [Suspect]
     Indication: DEPRESSION
     Dosage: 1 CAPSULE AT BEDTIME TAKEN BY MOUTH
     Route: 048
     Dates: start: 20131226, end: 20140226
  2. NORTRIPTYLINE [Suspect]
     Dosage: 1 CAPSULE AT BEDTIME TAKEN BY MOUTH
     Route: 048
     Dates: start: 20131226, end: 20140226

REACTIONS (6)
  - Panic attack [None]
  - Confusional state [None]
  - Nightmare [None]
  - Nervousness [None]
  - Dry mouth [None]
  - Constipation [None]
